FAERS Safety Report 13093004 (Version 1)
Quarter: 2017Q1

REPORT INFORMATION
  Report Type: Spontaneous
  Country: US (occurrence: US)
  Receive Date: 20170105
  Receipt Date: 20170105
  Transmission Date: 20170428
  Serious: No
  Sender: FDA-Public Use
  Company Number: None

PATIENT
  Age: 27 Year
  Sex: Male
  Weight: 105.5 kg

DRUGS (1)
  1. BUPRENORPHINE/NALOXONE [Suspect]
     Active Substance: BUPRENORPHINE\NALOXONE
     Indication: SUBSTANCE USE
     Route: 060
     Dates: start: 20161101

REACTIONS (2)
  - Drug dependence [None]
  - Product quality issue [None]

NARRATIVE: CASE EVENT DATE: 20161128
